FAERS Safety Report 12457272 (Version 1)
Quarter: 2016Q2

REPORT INFORMATION
  Report Type: Spontaneous
  Country: FR (occurrence: FR)
  Receive Date: 20160610
  Receipt Date: 20160610
  Transmission Date: 20160815
  Serious: Yes (Other)
  Sender: FDA-Public Use
  Company Number: FR-ABBVIE-16P-056-1649192-00

PATIENT
  Age: 74 Year
  Sex: Female

DRUGS (10)
  1. INEXIUM [Concomitant]
     Active Substance: ESOMEPRAZOLE
     Indication: ABDOMINAL PAIN UPPER
  2. CYCLO 3 FORT [Concomitant]
     Active Substance: ASCORBIC ACID\HESPERIDIN METHYLCHALCONE\RUSCUS ACULEATUS ROOT
     Indication: CARDIOVASCULAR DISORDER
     Dates: start: 1996
  3. FENOFIBRATE. [Suspect]
     Active Substance: FENOFIBRATE
     Indication: HYPERCHOLESTEROLAEMIA
     Dosage: BIOGARAN
     Route: 048
     Dates: start: 20160601, end: 20160602
  4. LEVOTHYROX [Concomitant]
     Active Substance: LEVOTHYROXINE
     Indication: HYPOTHYROIDISM
     Route: 048
     Dates: start: 1990
  5. CHONDROSULF [Concomitant]
     Active Substance: CHONDROITIN SULFATE (CHICKEN)
     Indication: RHEUMATIC DISORDER
  6. ISOPTINE [Concomitant]
     Active Substance: VERAPAMIL HYDROCHLORIDE
     Indication: CARDIAC DISORDER
     Dates: start: 2014
  7. TANAKAN [Concomitant]
     Active Substance: GINKGO
     Indication: CARDIOVASCULAR DISORDER
     Dates: start: 1996
  8. PRAZEPAM BIOGARAN [Concomitant]
     Active Substance: PRAZEPAM
     Indication: ANXIETY
  9. RIVOTRIL [Concomitant]
     Active Substance: CLONAZEPAM
     Indication: NERVOUS SYSTEM DISORDER
     Dosage: 1 OR 2 TABLET (2 MG) PER DAY
     Route: 048
     Dates: start: 1999
  10. TAREG [Concomitant]
     Active Substance: VALSARTAN
     Indication: HYPERTENSION
     Dates: start: 2014

REACTIONS (3)
  - Burning sensation [Not Recovered/Not Resolved]
  - Face oedema [Not Recovered/Not Resolved]
  - Local swelling [Not Recovered/Not Resolved]

NARRATIVE: CASE EVENT DATE: 20160602
